FAERS Safety Report 9217167 (Version 2)
Quarter: 2013Q3

REPORT INFORMATION
  Report Type: Spontaneous
  Country: US (occurrence: US)
  Receive Date: 20130408
  Receipt Date: 20130913
  Transmission Date: 20140515
  Serious: Yes (Hospitalization)
  Sender: FDA-Public Use
  Company Number: US-JNJFOC-20130318942

PATIENT
  Age: 90 Year
  Sex: Male

DRUGS (5)
  1. XARELTO [Suspect]
     Indication: CEREBROVASCULAR ACCIDENT PROPHYLAXIS
     Route: 048
     Dates: end: 20130327
  2. XARELTO [Suspect]
     Indication: ATRIAL FIBRILLATION
     Route: 048
     Dates: end: 20130327
  3. AMIODARONE [Interacting]
     Indication: PRODUCT USED FOR UNKNOWN INDICATION
     Route: 065
  4. PIOGLITAZONE [Concomitant]
     Route: 065
  5. BICALUTAMIDE [Concomitant]
     Indication: PROSTATE CANCER
     Route: 065

REACTIONS (5)
  - Faeces discoloured [Not Recovered/Not Resolved]
  - Electrocardiogram ST segment depression [Not Recovered/Not Resolved]
  - Haemoglobin decreased [Not Recovered/Not Resolved]
  - Glomerular filtration rate decreased [Not Recovered/Not Resolved]
  - Drug interaction [Recovered/Resolved]
